FAERS Safety Report 23101055 (Version 1)
Quarter: 2023Q4

REPORT INFORMATION
  Report Type: Spontaneous
  Country: US (occurrence: US)
  Receive Date: 20231024
  Receipt Date: 20231024
  Transmission Date: 20240109
  Serious: Yes (Other)
  Sender: FDA-Public Use
  Company Number: US-REGENERON PHARMACEUTICALS, INC.-2022-131823

PATIENT
  Sex: Male

DRUGS (2)
  1. LIBTAYO [Suspect]
     Active Substance: CEMIPLIMAB-RWLC
     Indication: Squamous cell carcinoma of head and neck
     Dosage: 350 MG, Q3W
     Route: 042
  2. LIBTAYO [Suspect]
     Active Substance: CEMIPLIMAB-RWLC
     Dosage: 350 MG, Q3W
     Route: 042
     Dates: start: 20220928, end: 20220928

REACTIONS (5)
  - Neuropathy peripheral [Unknown]
  - Sleep disorder [Unknown]
  - Injection site pain [Unknown]
  - Dizziness [Unknown]
  - Bone pain [Unknown]
